FAERS Safety Report 6885564-0 (Version None)
Quarter: 2010Q3

REPORT INFORMATION
  Report Type: 
  Country: None (occurrence: None)
  Receive Date: 20100729
  Receipt Date: 20080720
  Transmission Date: 20110219
  Serious: No
  Sender: FDA-Public Use
  Company Number: US-PFIZER INC-2008060589

PATIENT
  Age: 54 Year
  Sex: Female

DRUGS (2)
  1. CELEBREX [Suspect]
  2. CORTICOSTEROIDS [Suspect]

REACTIONS (1)
  - VOMITING [None]
